FAERS Safety Report 10283548 (Version 2)
Quarter: 2014Q3

REPORT INFORMATION
  Report Type: Spontaneous
  Country: US (occurrence: None)
  Receive Date: 20140703
  Receipt Date: 20140707
  Transmission Date: 20150326
  Serious: Yes (Death)
  Sender: FDA-Public Use
  Company Number: UNT-2014-002096

PATIENT
  Age: 67 Year
  Sex: Female

DRUGS (14)
  1. FLUOXETINE (FLUOXETINE) [Concomitant]
     Active Substance: FLUOXETINE HYDROCHLORIDE
  2. ATORVASTATIN (ATORVASTATIN) [Concomitant]
     Active Substance: ATORVASTATIN
  3. FLUOXETINE (FLUOXETINE) [Concomitant]
     Active Substance: FLUOXETINE HYDROCHLORIDE
  4. ATROVENT (IPRATROPIUM BROMIDE) [Concomitant]
  5. MIRTAZAPINE (MIRTAZAPINE) [Concomitant]
     Active Substance: MIRTAZAPINE
  6. BENZONATEATE(BENZONATATE) [Concomitant]
  7. FURSEMIDE (FUROSEMIDE) [Concomitant]
  8. OMEPRAZOLE (OMEPRAZOLE) [Concomitant]
     Active Substance: OMEPRAZOLE
  9. TRACLEER [Concomitant]
     Active Substance: BOSENTAN\BOSENTAN MONOHYDRATE
  10. TYVASO [Suspect]
     Active Substance: TREPROSTINIL
     Indication: COR PULMONALE CHRONIC
     Route: 055
     Dates: start: 20130131
  11. COUMADIN [Concomitant]
     Active Substance: WARFARIN SODIUM
  12. ALBUTEROL/00139501/ (SALBUTAMOL) [Concomitant]
  13. LISINOPRIL (LISINOPRIL) [Concomitant]
     Active Substance: LISINOPRIL
  14. OXYGEN (OXYGEN) [Concomitant]
     Active Substance: OXYGEN

REACTIONS (4)
  - Pulmonary arterial hypertension [None]
  - Malaise [None]
  - Right ventricular failure [None]
  - Cardiac failure congestive [None]

NARRATIVE: CASE EVENT DATE: 20140602
